FAERS Safety Report 25055216 (Version 2)
Quarter: 2025Q1

REPORT INFORMATION
  Report Type: Spontaneous
  Country: US (occurrence: US)
  Receive Date: 20250308
  Receipt Date: 20250326
  Transmission Date: 20250409
  Serious: Yes (Hospitalization, Other)
  Sender: AUROBINDO
  Company Number: US-AUROBINDO-AUR-APL-2025-012213

PATIENT

DRUGS (1)
  1. IMATINIB MESYLATE [Suspect]
     Active Substance: IMATINIB MESYLATE
     Indication: Malignant neoplasm progression
     Route: 065
     Dates: end: 20250116

REACTIONS (5)
  - Bacteraemia [Unknown]
  - Escherichia infection [Unknown]
  - Skin disorder [Unknown]
  - Product dose omission in error [Unknown]
  - Product physical issue [Unknown]

NARRATIVE: CASE EVENT DATE: 20250116
